FAERS Safety Report 13360372 (Version 1)
Quarter: 2017Q1

REPORT INFORMATION
  Report Type: Spontaneous
  Country: CA (occurrence: CA)
  Receive Date: 20170322
  Receipt Date: 20170322
  Transmission Date: 20170429
  Serious: Yes (Other)
  Sender: FDA-Public Use
  Company Number: CA-TEVA-750206ACC

PATIENT
  Age: 74 Year
  Sex: Male

DRUGS (1)
  1. CO DILTIAZEM T [Suspect]
     Active Substance: DILTIAZEM
     Indication: ANGINA PECTORIS
     Dosage: 480 MILLIGRAM DAILY;
     Route: 048

REACTIONS (5)
  - Feeling abnormal [Recovered/Resolved]
  - Asthenia [Recovered/Resolved]
  - Fatigue [Recovered/Resolved]
  - Irritability [Recovered/Resolved]
  - Blood glucose increased [Recovered/Resolved]
